FAERS Safety Report 5203799-X (Version None)
Quarter: 2007Q1

REPORT INFORMATION
  Report Type: 
  Country: None (occurrence: None)
  Receive Date: 20070105
  Receipt Date: 20061219
  Transmission Date: 20070707
  Serious: Yes (Other)
  Sender: FDA-Public Use
  Company Number: DAV-AE-NAP-06-001

PATIENT
  Age: 55 Year
  Sex: Male

DRUGS (2)
  1. NAPROXEN [Suspect]
     Dosage: 500MG-ORAL
     Route: 048
  2. APIDRA [Suspect]

REACTIONS (1)
  - DIABETIC COMA [None]
